FAERS Safety Report 25210099 (Version 1)
Quarter: 2025Q2

REPORT INFORMATION
  Report Type: Other
  Country: CA (occurrence: CA)
  Receive Date: 20250417
  Receipt Date: 20250417
  Transmission Date: 20250716
  Serious: Yes (Other)
  Sender: PFIZER
  Company Number: CA-PFIZER INC-202500076194

PATIENT
  Age: 38 Year

DRUGS (2)
  1. AZITHROMYCIN [Suspect]
     Active Substance: AZITHROMYCIN
     Indication: Gonorrhoea
     Route: 030
  2. CEFIXIME [Suspect]
     Active Substance: CEFIXIME
     Indication: Gonorrhoea
     Route: 030

REACTIONS (2)
  - Oropharyngeal gonococcal infection [Recovered/Resolved]
  - Treatment failure [Recovered/Resolved]
